FAERS Safety Report 8309014-2 (Version None)
Quarter: 2012Q2

REPORT INFORMATION
  Report Type: 
  Country: None (occurrence: None)
  Receive Date: 20120424
  Receipt Date: 20120419
  Transmission Date: 20120825
  Serious: Yes (Other)
  Sender: FDA-Public Use
  Company Number: GB-ROCHE-1005421

PATIENT
  Sex: Female
  Weight: 66.284 kg

DRUGS (8)
  1. CLOPIDOGREL [Concomitant]
  2. LANSOPRAZOLE [Concomitant]
  3. LUCENTIS [Suspect]
     Indication: AGE-RELATED MACULAR DEGENERATION
     Route: 050
     Dates: start: 20100903
  4. CALCIUM CARBONATE [Concomitant]
  5. ASPIRIN [Concomitant]
  6. LUCENTIS [Suspect]
     Route: 050
     Dates: start: 20110909
  7. QUININE SULFATE [Concomitant]
  8. BISOPROLOL FUMARATE [Concomitant]

REACTIONS (3)
  - CHEST PAIN [None]
  - CORONARY ARTERY DISEASE [None]
  - ANGINA PECTORIS [None]
